FAERS Safety Report 8501038-5 (Version None)
Quarter: 2012Q3

REPORT INFORMATION
  Report Type: 
  Country: None (occurrence: None)
  Receive Date: 20120710
  Receipt Date: 20120702
  Transmission Date: 20120928
  Serious: Yes (Other)
  Sender: FDA-Public Use
  Company Number: JP-VERTEX PHARMACEUTICALS INC.-AE-2012-004621

PATIENT
  Age: 50 Year
  Sex: Female

DRUGS (11)
  1. REBETOL [Concomitant]
     Route: 048
     Dates: start: 20120321, end: 20120326
  2. LOXOPROFEN [Concomitant]
     Route: 048
     Dates: start: 20120213, end: 20120311
  3. TELAVIC (TELAPREVIR) [Suspect]
     Route: 048
     Dates: start: 20120321, end: 20120326
  4. PEG-INTRON [Concomitant]
     Route: 058
     Dates: start: 20120410, end: 20120515
  5. TELAVIC (TELAPREVIR) [Suspect]
     Indication: HEPATITIS C
     Route: 048
     Dates: start: 20120213, end: 20120320
  6. TELAVIC (TELAPREVIR) [Suspect]
     Route: 048
     Dates: start: 20120410, end: 20120416
  7. REBETOL [Concomitant]
     Route: 048
     Dates: start: 20120227, end: 20120320
  8. PEG-INTRON [Concomitant]
     Indication: HEPATITIS C
     Route: 058
     Dates: start: 20120213, end: 20120321
  9. MUCOSTA [Concomitant]
     Route: 048
     Dates: start: 20120213, end: 20120311
  10. REBETOL [Concomitant]
     Indication: HEPATITIS C
     Route: 048
     Dates: start: 20120213, end: 20120226
  11. REBETOL [Concomitant]
     Route: 048
     Dates: start: 20120410, end: 20120521

REACTIONS (3)
  - WHITE BLOOD CELL COUNT DECREASED [None]
  - RED BLOOD CELL COUNT DECREASED [None]
  - HAEMOGLOBIN DECREASED [None]
